FAERS Safety Report 7421221-X (Version None)
Quarter: 2011Q2

REPORT INFORMATION
  Report Type: 
  Country: None (occurrence: None)
  Receive Date: 20110418
  Receipt Date: 20110412
  Transmission Date: 20111010
  Serious: Yes (Hospitalization, Other)
  Sender: FDA-Public Use
  Company Number: US-ALEXION-A201000723

PATIENT
  Sex: Female
  Weight: 42.948 kg

DRUGS (13)
  1. PROGRAF [Concomitant]
     Indication: IMMUNOSUPPRESSANT DRUG THERAPY
     Dosage: UNK
     Route: 048
  2. URSODIOL [Concomitant]
     Dosage: UNK
  3. CALCIUM [Concomitant]
     Dosage: UNK
     Route: 048
  4. SOLIRIS [Suspect]
     Indication: PAROXYSMAL NOCTURNAL HAEMOGLOBINURIA
     Dosage: 600 MG, QW
     Route: 042
     Dates: start: 20090801, end: 20090901
  5. SOLIRIS [Suspect]
     Dosage: 900 MG, Q2W
     Route: 042
     Dates: start: 20090901
  6. LOPRESSOR [Concomitant]
     Dosage: UNK
  7. PROTONIX [Concomitant]
     Dosage: UNK
  8. SENNA [Concomitant]
     Dosage: UNK
     Route: 048
  9. COLACE [Concomitant]
     Dosage: UNK
  10. COUMADIN [Concomitant]
     Dosage: UNK
     Route: 048
  11. DUONEB [Concomitant]
     Dosage: UNK
     Route: 055
     Dates: start: 20100704
  12. MULTI-VITAMINS [Concomitant]
     Dosage: UNK
     Route: 048
  13. OMEPRAZOLE [Concomitant]
     Dosage: UNK
     Route: 048

REACTIONS (11)
  - ABDOMINAL ABSCESS [None]
  - DYSPEPSIA [None]
  - NAUSEA [None]
  - LUNG INFILTRATION [None]
  - RENAL FAILURE ACUTE [None]
  - FATIGUE [None]
  - WOUND DEHISCENCE [None]
  - SEPSIS [None]
  - INCISIONAL HERNIA [None]
  - POST PROCEDURAL HAEMATOMA [None]
  - VOMITING [None]
